FAERS Safety Report 6507300-X (Version None)
Quarter: 2009Q4

REPORT INFORMATION
  Report Type: 
  Country: None (occurrence: None)
  Receive Date: 20091221
  Receipt Date: 20091216
  Transmission Date: 20100525
  Serious: Yes (Hospitalization)
  Sender: FDA-Public Use
  Company Number: PHHO2005US14256

PATIENT
  Sex: Female
  Weight: 69.1 kg

DRUGS (8)
  1. PLACEBO PLACEBO [Suspect]
     Dosage: LEVEL 1
     Route: 048
     Dates: start: 20030305
  2. PLACEBO PLACEBO [Suspect]
     Dosage: LEVEL 2
     Route: 048
     Dates: end: 20050819
  3. PLACEBO PLACEBO [Suspect]
     Dosage: LEVEL 2
     Route: 048
     Dates: start: 20050820
  4. PLACEBO PLACEBO [Suspect]
     Indication: CARDIOVASCULAR DISORDER
     Dosage: LEVEL 1
     Route: 048
     Dates: start: 20030305
  5. PLACEBO PLACEBO [Suspect]
     Dosage: LEVEL 2
     Route: 048
     Dates: end: 20050819
  6. PLACEBO PLACEBO [Suspect]
     Dosage: LEVEL 2
     Dates: start: 20050820
  7. DILTIAZEM [Suspect]
     Indication: HYPERTENSION
     Dosage: 180 MG / DAY
     Route: 048
     Dates: end: 20050819
  8. TOPROL-XL [Suspect]
     Indication: HYPERTENSION
     Dosage: 50 MG, QD
     Route: 048
     Dates: end: 20050819

REACTIONS (5)
  - BLOOD POTASSIUM INCREASED [None]
  - BRADYCARDIA [None]
  - CARDIAC PACEMAKER INSERTION [None]
  - DISEASE PROGRESSION [None]
  - RENAL FAILURE CHRONIC [None]
